FAERS Safety Report 22528118 (Version 1)
Quarter: 2023Q2

REPORT INFORMATION
  Report Type: Spontaneous
  Country: FR (occurrence: FR)
  Receive Date: 20230607
  Receipt Date: 20230607
  Transmission Date: 20230721
  Serious: Yes (Other)
  Sender: FDA-Public Use
  Company Number: FR-AMGEN-FRASP2023096143

PATIENT
  Age: 89 Year
  Sex: Male

DRUGS (2)
  1. ARANESP [Suspect]
     Active Substance: DARBEPOETIN ALFA
     Indication: Anaemia
     Dosage: 300 MICROGRAM
     Route: 058
     Dates: start: 20230419, end: 20230419
  2. AMOXICILLIN\CLAVULANIC ACID [Suspect]
     Active Substance: AMOXICILLIN\CLAVULANIC ACID
     Indication: Pneumonia
     Dosage: 1 GRAM, Q8H
     Route: 048
     Dates: start: 20230418, end: 20230421

REACTIONS (1)
  - Acute generalised exanthematous pustulosis [Recovering/Resolving]

NARRATIVE: CASE EVENT DATE: 20230422
